FAERS Safety Report 18919846 (Version 2)
Quarter: 2021Q1

REPORT INFORMATION
  Report Type: Report from Study
  Country: None (occurrence: US)
  Receive Date: 20210222
  Receipt Date: 20210303
  Transmission Date: 20210420
  Serious: Yes (Life-Threatening, Other)
  Sender: FDA-Public Use
  Company Number: US-ABBVIE-21K-163-3776124-00

PATIENT
  Age: 15 Year
  Sex: Male

DRUGS (1)
  1. HUMIRA [Suspect]
     Active Substance: ADALIMUMAB
     Indication: CROHN^S DISEASE
     Route: 058
     Dates: start: 20200424, end: 20210212

REACTIONS (10)
  - Angioedema [Unknown]
  - Nausea [Unknown]
  - Drug specific antibody present [Unknown]
  - Cyanosis [Unknown]
  - Flushing [Unknown]
  - Ocular hyperaemia [Unknown]
  - Cyanosis central [Unknown]
  - Hypersensitivity [Recovered/Resolved]
  - Dyspnoea [Unknown]
  - Drug level abnormal [Unknown]

NARRATIVE: CASE EVENT DATE: 2021
